FAERS Safety Report 18313809 (Version 2)
Quarter: 2020Q3

REPORT INFORMATION
  Report Type: Spontaneous
  Country: US (occurrence: US)
  Receive Date: 20200925
  Receipt Date: 20200925
  Transmission Date: 20201103
  Serious: Yes (Hospitalization)
  Sender: FDA-Public Use
  Company Number: US-CELGENEUS-USA-20200905144

PATIENT
  Age: 70 Year
  Sex: Female

DRUGS (1)
  1. REVLIMID [Suspect]
     Active Substance: LENALIDOMIDE
     Indication: PLASMA CELL MYELOMA
     Dosage: 10 MILLIGRAM
     Route: 048
     Dates: start: 20200821

REACTIONS (6)
  - Dizziness [Unknown]
  - Heart rate increased [Unknown]
  - Fall [Unknown]
  - Upper limb fracture [Unknown]
  - Rib fracture [Unknown]
  - Hypertension [Unknown]

NARRATIVE: CASE EVENT DATE: 20200908
